FAERS Safety Report 20245892 (Version 1)
Quarter: 2021Q4

REPORT INFORMATION
  Report Type: Spontaneous
  Country: US (occurrence: None)
  Receive Date: 20211228
  Receipt Date: 20211228
  Transmission Date: 20220303
  Serious: Yes (Hospitalization, Other)
  Sender: FDA-Public Use
  Company Number: None

PATIENT
  Age: 76 Year
  Sex: Female

DRUGS (2)
  1. AMBRISENTAN [Suspect]
     Active Substance: AMBRISENTAN
     Indication: Pulmonary arterial hypertension
     Dosage: FREQUENCY : AT BEDTIME;?
     Route: 048
     Dates: start: 20211205, end: 20211218
  2. SILDENAFIL [Concomitant]
     Active Substance: SILDENAFIL
     Dates: start: 20211006, end: 20211218

REACTIONS (3)
  - Fluid retention [None]
  - Lethargy [None]
  - Hypotension [None]

NARRATIVE: CASE EVENT DATE: 20211227
